APPROVED DRUG PRODUCT: MYCOPHENOLATE MOFETIL
Active Ingredient: MYCOPHENOLATE MOFETIL
Strength: 250MG
Dosage Form/Route: CAPSULE;ORAL
Application: A207022 | Product #001 | TE Code: AB
Applicant: HETERO LABS LTD UNIT V
Approved: Oct 22, 2024 | RLD: No | RS: No | Type: RX